FAERS Safety Report 8330096-6 (Version None)
Quarter: 2012Q2

REPORT INFORMATION
  Report Type: 
  Country: None (occurrence: None)
  Receive Date: 20120502
  Receipt Date: 20100112
  Transmission Date: 20120825
  Serious: No
  Sender: FDA-Public Use
  Company Number: US-TEVA-2010000169

PATIENT
  Sex: Female
  Weight: 58.566 kg

DRUGS (10)
  1. VALIUM [Concomitant]
     Indication: BIPOLAR DISORDER
  2. SIMVASTATIN [Concomitant]
     Indication: BLOOD CHOLESTEROL INCREASED
     Dates: start: 20080101
  3. MAXZIDE [Concomitant]
     Indication: HYPERTENSION
     Dosage: 37.5 MILLIGRAM;
     Dates: start: 20080101
  4. VALIUM [Concomitant]
     Indication: ANXIETY
     Dates: start: 20050101
  5. COMBIVENT [Concomitant]
     Indication: EMPHYSEMA
  6. NUVIGIL [Suspect]
     Indication: SLEEP APNOEA SYNDROME
     Dosage: 150 MILLIGRAM;
     Route: 048
     Dates: start: 20100104, end: 20100106
  7. NUVIGIL [Suspect]
     Dosage: 75 MILLIGRAM;
     Route: 048
     Dates: start: 20100106, end: 20100109
  8. SINGULAIR [Concomitant]
     Indication: ASTHMA
     Dosage: 10 MILLIGRAM;
     Dates: start: 20050101
  9. TOPROL-XL [Concomitant]
     Indication: HYPERTENSION
     Dosage: 100 MILLIGRAM;
     Dates: start: 20080101
  10. ZYPREXA [Concomitant]
     Indication: BIPOLAR DISORDER
     Dosage: 5 MILLIGRAM;
     Dates: start: 20030101

REACTIONS (6)
  - TREMOR [None]
  - FEELING ABNORMAL [None]
  - DRUG EFFECT INCREASED [None]
  - DRUG ADMINISTRATION ERROR [None]
  - ANXIETY [None]
  - INSOMNIA [None]
